FAERS Safety Report 7776063-2 (Version None)
Quarter: 2011Q3

REPORT INFORMATION
  Report Type: 
  Country: None (occurrence: None)
  Receive Date: 20110923
  Receipt Date: 20110913
  Transmission Date: 20111222
  Serious: Yes (Hospitalization, Other)
  Sender: FDA-Public Use
  Company Number: IL-CELGENEUS-082-50794-11050515

PATIENT
  Age: 76 Year
  Sex: Female

DRUGS (5)
  1. ENALADEX [Concomitant]
     Indication: HYPERTENSION
     Route: 065
  2. VIDAZA [Suspect]
     Indication: MYELODYSPLASTIC SYNDROME
     Dosage: 75 MILLIGRAM/SQ. METER
     Route: 058
     Dates: start: 20110301
  3. STEROIDS [Concomitant]
     Route: 065
  4. VIDAZA [Suspect]
     Dosage: 60 MILLIGRAM
     Route: 058
     Dates: start: 20110401, end: 20110801
  5. GLUCOPHAGE [Concomitant]
     Indication: DIABETES MELLITUS
     Route: 065

REACTIONS (5)
  - ANAL FISSURE [None]
  - CONSTIPATION [None]
  - HYPOVOLAEMIC SHOCK [None]
  - ANAL HAEMORRHAGE [None]
  - THROMBOCYTOPENIA [None]
